FAERS Safety Report 5039132-6 (Version None)
Quarter: 2006Q2

REPORT INFORMATION
  Report Type: 
  Country: None (occurrence: None)
  Receive Date: 20060629
  Receipt Date: 20060414
  Transmission Date: 20061013
  Serious: Yes (Hospitalization)
  Sender: FDA-Public Use
  Company Number: US-GLAXOSMITHKLINE-A0601837A

PATIENT
  Age: 61 Year
  Sex: Female
  Weight: 95.9 kg

DRUGS (9)
  1. WELLBUTRIN [Suspect]
     Indication: DRUG USE FOR UNKNOWN INDICATION
     Dosage: 150MG PER DAY
     Route: 048
     Dates: start: 20051111, end: 20051114
  2. THYROID TAB [Concomitant]
     Indication: HYPOTHYROIDISM
  3. FEMHRT [Concomitant]
  4. KETEK [Concomitant]
  5. SURGERY [Concomitant]
     Dates: start: 20051111, end: 20051111
  6. FIBERCON [Concomitant]
  7. FISH OIL [Concomitant]
  8. CALCIUM GLUCONATE [Concomitant]
     Route: 048
  9. NIACIN [Concomitant]

REACTIONS (8)
  - CHEST X-RAY ABNORMAL [None]
  - DYSPNOEA [None]
  - GRAND MAL CONVULSION [None]
  - INFECTION [None]
  - OXYGEN SATURATION DECREASED [None]
  - PNEUMONITIS [None]
  - SWELLING [None]
  - TROPONIN INCREASED [None]
